FAERS Safety Report 6773944-3 (Version None)
Quarter: 2010Q2

REPORT INFORMATION
  Report Type: 
  Country: None (occurrence: None)
  Receive Date: 20100617
  Receipt Date: 20100610
  Transmission Date: 20101027
  Serious: Yes (Hospitalization)
  Sender: FDA-Public Use
  Company Number: PHHO2010GB08837

PATIENT
  Sex: Female

DRUGS (10)
  1. AFINITOR [Suspect]
     Dosage: UNK
     Route: 048
     Dates: start: 20100519, end: 20100523
  2. ARA-C [Concomitant]
     Dosage: UNK
     Dates: start: 20100519, end: 20100523
  3. VANCOMYCIN [Concomitant]
  4. ACYCLOVIR [Concomitant]
  5. MEROPENEM [Concomitant]
  6. ONDANSETRON [Concomitant]
  7. POTASSIUM CHLORIDE [Concomitant]
  8. CYCLIZINE [Concomitant]
  9. LOPERAMIDE [Concomitant]
  10. NOZINAN [Concomitant]

REACTIONS (1)
  - HYPOPHOSPHATAEMIA [None]
